FAERS Safety Report 18511319 (Version 1)
Quarter: 2020Q4

REPORT INFORMATION
  Report Type: Spontaneous
  Country: US (occurrence: US)
  Receive Date: 20201117
  Receipt Date: 20201117
  Transmission Date: 20210114
  Serious: Yes (Death)
  Sender: FDA-Public Use
  Company Number: None

PATIENT
  Age: 74 Year
  Sex: Male

DRUGS (1)
  1. CORGARD [Suspect]
     Active Substance: NADOLOL
     Indication: ATRIAL FIBRILLATION
     Route: 048
     Dates: start: 20200916, end: 20200916

REACTIONS (4)
  - Contraindicated product administered [None]
  - Multiple organ dysfunction syndrome [None]
  - Cardiac failure [None]
  - Cardiogenic shock [None]

NARRATIVE: CASE EVENT DATE: 20200916
